FAERS Safety Report 11568779 (Version 3)
Quarter: 2018Q2

REPORT INFORMATION
  Report Type: Spontaneous
  Country: US (occurrence: US)
  Receive Date: 20150929
  Receipt Date: 20180424
  Transmission Date: 20180711
  Serious: Yes (Hospitalization, Disabling, Other)
  Sender: FDA-Public Use
  Company Number: US-DRREDDYS-USA/USA/15/0052997

PATIENT
  Age: 16 Year
  Sex: Male

DRUGS (2)
  1. LAMOTRIGINE TABLETS [Suspect]
     Active Substance: LAMOTRIGINE
     Indication: SEIZURE
     Route: 065
  2. LAMOTRIGINE TABLETS [Suspect]
     Active Substance: LAMOTRIGINE
     Indication: SEIZURE

REACTIONS (6)
  - Cogan^s syndrome [Recovered/Resolved with Sequelae]
  - Idiosyncratic drug reaction [Recovering/Resolving]
  - Treatment noncompliance [Unknown]
  - Tubulointerstitial nephritis and uveitis syndrome [Recovered/Resolved]
  - Seizure [Recovering/Resolving]
  - Chorioretinopathy [Recovered/Resolved]
